FAERS Safety Report 7637124-1 (Version None)
Quarter: 2011Q3

REPORT INFORMATION
  Report Type: 
  Country: None (occurrence: None)
  Receive Date: 20110722
  Receipt Date: 20110722
  Transmission Date: 20111222
  Serious: No
  Sender: FDA-Public Use
  Company Number: None

PATIENT
  Age: 60 Year
  Sex: Female
  Weight: 68.0396 kg

DRUGS (1)
  1. SIMVASTATIN [Suspect]
     Indication: BLOOD CHOLESTEROL INCREASED
     Dosage: 1/2 PILL EACH DAY

REACTIONS (9)
  - ERYTHEMA [None]
  - PYREXIA [None]
  - DRY SKIN [None]
  - RASH [None]
  - SWELLING FACE [None]
  - NASAL DISORDER [None]
  - DIARRHOEA [None]
  - EYELID PTOSIS [None]
  - UNEVALUABLE EVENT [None]
